FAERS Safety Report 4307706-3 (Version None)
Quarter: 2004Q1

REPORT INFORMATION
  Report Type: 
  Country: None (occurrence: None)
  Receive Date: 20040227
  Receipt Date: 20040227
  Transmission Date: 20041129
  Serious: Yes (Other)
  Sender: FDA-Public Use
  Company Number: None

PATIENT
  Sex: Male
  Weight: 78.3 kg

DRUGS (2)
  1. XELODA [Suspect]
     Dosage: PO 1500 MG BID
     Route: 048
     Dates: end: 20031229
  2. CARBOPLATIN [Suspect]
     Dosage: 1.5 AUC IV
     Route: 042
     Dates: end: 20040119

REACTIONS (1)
  - LABORATORY TEST ABNORMAL [None]
